FAERS Safety Report 12745125 (Version 2)
Quarter: 2016Q4

REPORT INFORMATION
  Report Type: Report from Study
  Country: US (occurrence: US)
  Receive Date: 20160915
  Receipt Date: 20161025
  Transmission Date: 20170207
  Serious: Yes (Other)
  Sender: FDA-Public Use
  Company Number: US-AMGEN-USASL2016123507

PATIENT
  Age: 83 Year
  Sex: Female
  Weight: 47.17 kg

DRUGS (1)
  1. KYPROLIS [Suspect]
     Active Substance: CARFILZOMIB
     Indication: PLASMA CELL MYELOMA
     Dosage: UNK
     Route: 065

REACTIONS (5)
  - Weight decreased [Unknown]
  - Unevaluable event [Unknown]
  - Gastric ulcer [Unknown]
  - Decreased appetite [Unknown]
  - Fatigue [Unknown]
